FAERS Safety Report 9988073 (Version 1)
Quarter: 2014Q1

REPORT INFORMATION
  Report Type: Spontaneous
  Country: US (occurrence: US)
  Receive Date: 20140307
  Receipt Date: 20140307
  Transmission Date: 20141002
  Serious: Yes (Hospitalization)
  Sender: FDA-Public Use
  Company Number: US-ASTRAZENECA-2014SE11108

PATIENT
  Age: 88 Year
  Sex: Female

DRUGS (27)
  1. ZESTRIL [Suspect]
     Route: 048
  2. LIDOCAINE [Suspect]
     Route: 065
  3. PRILOSEC [Suspect]
     Route: 048
  4. LOSARTAN [Concomitant]
  5. LABETOLOL [Concomitant]
  6. HYDROCHLORITHIAZIDE [Concomitant]
  7. AGGRENOX [Concomitant]
     Dosage: 25 MG/200 MG, TWICE A DAY
  8. LIPITOR [Concomitant]
  9. NEURONTIN [Concomitant]
     Dosage: 600 MG 1 IN THE MORNING, 1 AT NOON, 2 AT BEDTIME
  10. LEVOTHYROXINE [Concomitant]
  11. FOLIC ACID [Concomitant]
  12. HUMALOG INSULIN [Concomitant]
     Dosage: 28 UNITS AT BREAKFAST, 32 UNITS TWO TIMES A DAY IF NEEDED
  13. LEVEMIR INSULIN [Concomitant]
     Dosage: 42 UNITS AT BEDTIME
  14. OXYCODONE [Concomitant]
     Dosage: 5 MG, 1 TO 2 TABLETS EVERY 4-6 HOURS
  15. XANAX [Concomitant]
     Dosage: 0.5 MG, 1 OR 2 EVERY 8 HOURS IF NEEDED
  16. COLACE [Concomitant]
     Dosage: FOR TIMES A DAY IF NEEDED
  17. COSOPT+TIMOLOL [Concomitant]
     Dosage: 1 DROP IN BOTH EYES TWICE A DAY
  18. XALATAN [Concomitant]
     Dosage: 1 DROP IN BOTH EYES AT BEDTIME
  19. ALPHAGAN [Concomitant]
     Dosage: 10 ML 1 DROP IN BOTH EYES 2 TIMES A DAY
  20. FURESOMIDE [Concomitant]
     Dosage: 20 MG, HALF TABLET DAILY
  21. FLUTICASONE PROPIONATE [Concomitant]
     Dosage: 1 DROP IN EACH NOSTRIL IF NEEDED
  22. REFRESH [Concomitant]
     Dosage: USE IF NEEDED
  23. VITAMIN C [Concomitant]
  24. SUPER B COMPLEX WITH VITAMIN C [Concomitant]
     Dosage: DAILY
  25. COLON HEALTH [Concomitant]
     Dosage: 1 EVERY DAY
  26. CELEBREX [Concomitant]
  27. ZYRTEC [Concomitant]

REACTIONS (14)
  - Dyspnoea [Unknown]
  - Choking [Unknown]
  - Diabetes mellitus [Unknown]
  - Gastric disorder [Unknown]
  - Syncope [Unknown]
  - Abdominal pain upper [Unknown]
  - Feeling abnormal [Unknown]
  - Drug hypersensitivity [Unknown]
  - Cough [Unknown]
  - Depression [Unknown]
  - Apathy [Unknown]
  - Rash [Unknown]
  - Dizziness [Unknown]
  - Nausea [Unknown]
